FAERS Safety Report 15941230 (Version 2)
Quarter: 2019Q1

REPORT INFORMATION
  Report Type: Spontaneous
  Country: US (occurrence: US)
  Receive Date: 20190208
  Receipt Date: 20190314
  Transmission Date: 20190417
  Serious: Yes (Other)
  Sender: FDA-Public Use
  Company Number: US-ASTRAZENECA-2018SF66029

PATIENT
  Age: 26439 Day
  Sex: Male

DRUGS (19)
  1. NEXIUM [Suspect]
     Active Substance: ESOMEPRAZOLE MAGNESIUM
     Dosage: FOR MULTIPLE AND VARIOUS YEARS
     Route: 048
  2. NEXIUM [Suspect]
     Active Substance: ESOMEPRAZOLE MAGNESIUM
     Route: 048
     Dates: start: 20150227
  3. FLEXERIL [Concomitant]
     Active Substance: CYCLOBENZAPRINE HYDROCHLORIDE
  4. CLINDAMYCIN. [Concomitant]
     Active Substance: CLINDAMYCIN
  5. ZYRTEC [Concomitant]
     Active Substance: CETIRIZINE HYDROCHLORIDE
  6. PROSCAR [Concomitant]
     Active Substance: FINASTERIDE
  7. LEVOTHYROXINE SODIUM. [Concomitant]
     Active Substance: LEVOTHYROXINE SODIUM
  8. DICLOFENAC SODIUM. [Concomitant]
     Active Substance: DICLOFENAC SODIUM
  9. HYDROCHLOROTHIAZIDE. [Concomitant]
     Active Substance: HYDROCHLOROTHIAZIDE
  10. NORCO [Concomitant]
     Active Substance: ACETAMINOPHEN\HYDROCODONE BITARTRATE
  11. NEURONTIN [Concomitant]
     Active Substance: GABAPENTIN
  12. LEVOTHROID [Concomitant]
     Active Substance: LEVOTHYROXINE SODIUM
  13. IRBESARTAN. [Concomitant]
     Active Substance: IRBESARTAN
  14. FERROUS SULFATE. [Concomitant]
     Active Substance: FERROUS SULFATE
  15. CRESTOR [Concomitant]
     Active Substance: ROSUVASTATIN CALCIUM
  16. METAMUCIL [Concomitant]
     Active Substance: PLANTAGO SEED
  17. AMIODARONE [Concomitant]
     Active Substance: AMIODARONE
  18. TAMSULOSIN [Concomitant]
     Active Substance: TAMSULOSIN
  19. MIRTAZAPINE. [Concomitant]
     Active Substance: MIRTAZAPINE

REACTIONS (3)
  - Chronic kidney disease [Unknown]
  - Renal failure [Unknown]
  - Hyperchlorhydria [Unknown]

NARRATIVE: CASE EVENT DATE: 20160218
